FAERS Safety Report 16048998 (Version 4)
Quarter: 2020Q2

REPORT INFORMATION
  Report Type: Spontaneous
  Country: US (occurrence: US)
  Receive Date: 20190307
  Receipt Date: 20200508
  Transmission Date: 20200713
  Serious: Yes (Death, Other)
  Sender: FDA-Public Use
  Company Number: US-ASTRAZENECA-2018SF48133

PATIENT
  Age: 29741 Day
  Sex: Male
  Weight: 131.5 kg

DRUGS (60)
  1. AMOXICILLIN. [Concomitant]
     Active Substance: AMOXICILLIN
  2. ONDANSETRON [Concomitant]
     Active Substance: ONDANSETRON
  3. METFORMIN [Concomitant]
     Active Substance: METFORMIN HYDROCHLORIDE
  4. METOPROLOL. [Concomitant]
     Active Substance: METOPROLOL
  5. NEXIUM [Suspect]
     Active Substance: ESOMEPRAZOLE MAGNESIUM
     Indication: DYSPEPSIA
     Route: 048
     Dates: start: 20090118
  6. ACETAMINOPHEN. [Concomitant]
     Active Substance: ACETAMINOPHEN
     Indication: PAIN
  7. FLOMAX [Concomitant]
     Active Substance: TAMSULOSIN HYDROCHLORIDE
  8. HUMULIN NOS [Concomitant]
     Active Substance: INSULIN HUMAN
  9. VENTOLIN [Concomitant]
     Active Substance: ALBUTEROL SULFATE
  10. AZITHROMYCIN ANHYDROUS. [Concomitant]
     Active Substance: AZITHROMYCIN ANHYDROUS
  11. CEPHALEXIN. [Concomitant]
     Active Substance: CEPHALEXIN
  12. CLOBETASOL [Concomitant]
     Active Substance: CLOBETASOL
  13. ZOSTAVAX [Concomitant]
     Active Substance: VARICELLA-ZOSTER VIRUS STRAIN OKA/MERCK LIVE ANTIGEN
  14. ZOLPIDEM [Concomitant]
     Active Substance: ZOLPIDEM TARTRATE
  15. PREVACID [Suspect]
     Active Substance: LANSOPRAZOLE
     Route: 065
  16. ACTOS [Concomitant]
     Active Substance: PIOGLITAZONE HYDROCHLORIDE
  17. SIMVASTATIN. [Concomitant]
     Active Substance: SIMVASTATIN
  18. LISINOPRIL. [Concomitant]
     Active Substance: LISINOPRIL
  19. KLOR-CON [Concomitant]
     Active Substance: POTASSIUM CHLORIDE
  20. FUROSEMIDE. [Concomitant]
     Active Substance: FUROSEMIDE
  21. ADVAIR DISKUS [Concomitant]
     Active Substance: FLUTICASONE PROPIONATE\SALMETEROL XINAFOATE
  22. PROAIR HFA [Concomitant]
     Active Substance: ALBUTEROL SULFATE
  23. PREDNISOLONE ACETATE. [Concomitant]
     Active Substance: PREDNISOLONE ACETATE
  24. TOBRADEX [Concomitant]
     Active Substance: DEXAMETHASONE\TOBRAMYCIN
  25. LEVAQUIN [Concomitant]
     Active Substance: LEVOFLOXACIN
  26. PRILOSEC [Suspect]
     Active Substance: OMEPRAZOLE MAGNESIUM
     Indication: DYSPEPSIA
     Dosage: GENERIC OMEPRAZOLE
     Route: 065
     Dates: start: 20130319
  27. PEPCID [Concomitant]
     Active Substance: FAMOTIDINE
  28. ENALAPRIL [Concomitant]
     Active Substance: ENALAPRIL
  29. ZETIA [Concomitant]
     Active Substance: EZETIMIBE
  30. LANTUS [Concomitant]
     Active Substance: INSULIN GLARGINE
  31. RELION [Concomitant]
  32. METHOCARBAM [Concomitant]
     Active Substance: METHOCARBAMOL
  33. ROLAIDS [Concomitant]
     Active Substance: CALCIUM CARBONATE\MAGNESIUM HYDROXIDE
  34. ALLOPURINOL. [Concomitant]
     Active Substance: ALLOPURINOL
  35. TAMIFLU [Concomitant]
     Active Substance: OSELTAMIVIR PHOSPHATE
  36. ZYMAR [Concomitant]
     Active Substance: GATIFLOXACIN
  37. CIPRODEX [Concomitant]
     Active Substance: CIPROFLOXACIN HYDROCHLORIDE\DEXAMETHASONE
  38. ATORVASTATIN [Concomitant]
     Active Substance: ATORVASTATIN
  39. VOLTAREN [Concomitant]
     Active Substance: DICLOFENAC SODIUM
  40. FLUVIRIN NOS [Concomitant]
     Active Substance: INFLUENZA VIRUS VACCINE
  41. PRILOSEC [Suspect]
     Active Substance: OMEPRAZOLE MAGNESIUM
     Indication: DYSPEPSIA
     Dosage: GENERIC OMEPRAZOLE
     Route: 065
     Dates: start: 2013
  42. PROTONIX [Suspect]
     Active Substance: PANTOPRAZOLE SODIUM
     Route: 065
  43. MYLANTA [Concomitant]
     Active Substance: ALUMINUM HYDROXIDE\DIMETHICONE\MAGNESIUM HYDROXIDE
  44. COLCHICINE. [Concomitant]
     Active Substance: COLCHICINE
  45. MUPIROCIN. [Concomitant]
     Active Substance: MUPIROCIN
  46. VICTOZA [Concomitant]
     Active Substance: LIRAGLUTIDE
  47. NEXIUM [Suspect]
     Active Substance: ESOMEPRAZOLE MAGNESIUM
     Indication: DYSPEPSIA
     Route: 048
  48. ASPIRIN. [Concomitant]
     Active Substance: ASPIRIN
     Indication: PAIN
  49. XIBROM [Concomitant]
     Active Substance: BROMFENAC SODIUM
  50. DEXAMETHASON [Concomitant]
     Active Substance: DEXAMETHASONE
  51. NASONEX [Concomitant]
     Active Substance: MOMETASONE FUROATE
  52. NYSTAT/TRIAM [Concomitant]
  53. PRILOSEC [Suspect]
     Active Substance: OMEPRAZOLE MAGNESIUM
     Indication: DYSPEPSIA
     Route: 048
  54. VYTORIN [Concomitant]
     Active Substance: EZETIMIBE\SIMVASTATIN
  55. TIMOLOL. [Concomitant]
     Active Substance: TIMOLOL
  56. ZOVIRAX [Concomitant]
     Active Substance: ACYCLOVIR
  57. TIMOLOL. [Concomitant]
     Active Substance: TIMOLOL
  58. LEVEMIR [Concomitant]
     Active Substance: INSULIN DETEMIR
  59. COLCRYS [Concomitant]
     Active Substance: COLCHICINE
  60. SMZ/TMP [Concomitant]
     Active Substance: SULFAMETHOXAZOLE\TRIMETHOPRIM

REACTIONS (6)
  - Renal injury [Unknown]
  - Renal failure [Not Recovered/Not Resolved]
  - Renal impairment [Not Recovered/Not Resolved]
  - Death [Fatal]
  - Chronic kidney disease [Not Recovered/Not Resolved]
  - Rebound acid hypersecretion [Unknown]

NARRATIVE: CASE EVENT DATE: 20160328
